FAERS Safety Report 9602765 (Version 3)
Quarter: 2014Q1

REPORT INFORMATION
  Report Type: Report from Study
  Country: DE (occurrence: DE)
  Receive Date: 20131007
  Receipt Date: 20140325
  Transmission Date: 20141002
  Serious: Yes (Hospitalization)
  Sender: FDA-Public Use
  Company Number: PHHY2013DE109985

PATIENT
  Sex: Female

DRUGS (3)
  1. FTY 720 [Suspect]
     Indication: MULTIPLE SCLEROSIS
     Dosage: 0.5 MG, QD
     Route: 048
     Dates: start: 20130703
  2. L-THYROXIN [Concomitant]
     Dosage: 75 UG, UNK
  3. ORAL CONTRACEPTIVE NOS [Concomitant]
     Dosage: UNK
     Route: 048

REACTIONS (1)
  - Basal cell carcinoma [Recovered/Resolved]
